FAERS Safety Report 5004304-3 (Version None)
Quarter: 2006Q2

REPORT INFORMATION
  Report Type: 
  Country: None (occurrence: None)
  Receive Date: 20060511
  Receipt Date: 20060503
  Transmission Date: 20061013
  Serious: Yes (Disabling)
  Sender: FDA-Public Use
  Company Number: HQWYE408620MAR06

PATIENT
  Age: 45 Year
  Sex: Female
  Weight: 77.18 kg

DRUGS (7)
  1. EFFEXOR XR [Suspect]
     Indication: ANXIETY
     Dosage: 150 MG 1X PER 1 DAY ORAL ; 112.5 MG 1X PER 1 DAY ; 75 MG 1X PER 1 DAY ORAL ; 37.5 MG 1X PER 1 DAY OR
     Route: 048
     Dates: start: 20040101, end: 20060101
  2. PROVENTIL (SALBUTAMOL SULFATE) [Concomitant]
  3. SONATA [Concomitant]
  4. CLARINEX [Concomitant]
  5. NASONEX [Concomitant]
  6. ADVAIR DISKUS 100/50 [Concomitant]
  7. SPIRONOLACTONE [Concomitant]

REACTIONS (14)
  - AFFECT LABILITY [None]
  - CHEST DISCOMFORT [None]
  - DIARRHOEA [None]
  - DIZZINESS [None]
  - DRUG WITHDRAWAL SYNDROME [None]
  - DYSPNOEA [None]
  - EMOTIONAL DISORDER [None]
  - FATIGUE [None]
  - HEADACHE [None]
  - HEART RATE INCREASED [None]
  - MENTAL IMPAIRMENT [None]
  - NAUSEA [None]
  - PARAESTHESIA [None]
  - VISUAL DISTURBANCE [None]
